FAERS Safety Report 21441229 (Version 1)
Quarter: 2022Q4

REPORT INFORMATION
  Report Type: Spontaneous
  Country: IT (occurrence: IT)
  Receive Date: 20221011
  Receipt Date: 20221011
  Transmission Date: 20230113
  Serious: Yes (Other)
  Sender: FDA-Public Use
  Company Number: None

PATIENT
  Age: 75 Year
  Sex: Male
  Weight: 80 kg

DRUGS (6)
  1. PEMETREXED [Suspect]
     Active Substance: PEMETREXED
     Indication: Lung adenocarcinoma
     Dosage: FREQ:21D;TOTAL DOSAGE 890 MG EVERY 21 DAYS CONSISTING OF 500 MG (LOT D4TP1A) AND 100 MG (LOT D36J2F)
     Route: 042
     Dates: start: 20220120, end: 20220727
  2. PEMETREXED [Suspect]
     Active Substance: PEMETREXED
     Dosage: FREQ:21D;TOTAL DOSAGE 890 MG EVERY 21 DAYS CONSISTING OF 500 MG (LOT D4TP1A) AND 100 MG (LOT D36J2F)
     Route: 042
     Dates: start: 20220120, end: 20220727
  3. KEYTRUDA [Suspect]
     Active Substance: PEMBROLIZUMAB
     Indication: Lung adenocarcinoma
     Dosage: 200 MG
     Route: 042
  4. FOLIC ACID [Concomitant]
     Active Substance: FOLIC ACID
     Dosage: 400 MG
     Route: 048
  5. PREDNISONE [Concomitant]
     Active Substance: PREDNISONE
     Dosage: 25 MG, 1 TABLET OF 25 MG THE DAY AFTER CHEMO
     Route: 048
  6. PREDNISONE [Concomitant]
     Active Substance: PREDNISONE
     Dosage: 50 MG,  TABLET OF 50 MG THE DAY AFTER CHEMO

REACTIONS (3)
  - Dermatitis bullous [Recovering/Resolving]
  - Rash [Recovering/Resolving]
  - Lichenification [Recovering/Resolving]

NARRATIVE: CASE EVENT DATE: 20220815
